FAERS Safety Report 24032557 (Version 1)
Quarter: 2024Q3

REPORT INFORMATION
  Report Type: Spontaneous
  Country: US (occurrence: US)
  Receive Date: 20240701
  Receipt Date: 20240701
  Transmission Date: 20241017
  Serious: No
  Sender: TEVA
  Company Number: US-TEVA-VS-3210872

PATIENT
  Age: 73 Year
  Sex: Male

DRUGS (1)
  1. LEVOTHYROXINE [Suspect]
     Active Substance: LEVOTHYROXINE\LEVOTHYROXINE SODIUM
     Indication: Product used for unknown indication
     Route: 048
     Dates: start: 20240511, end: 20240531

REACTIONS (4)
  - Nausea [Unknown]
  - Rash morbilliform [Unknown]
  - Sinusitis [Unknown]
  - Dysphonia [Unknown]
